FAERS Safety Report 6546486-8 (Version None)
Quarter: 2010Q1

REPORT INFORMATION
  Report Type: 
  Country: None (occurrence: None)
  Receive Date: 20100122
  Receipt Date: 20100120
  Transmission Date: 20100710
  Serious: Yes (Death)
  Sender: FDA-Public Use
  Company Number: PHHY2009GB39970

PATIENT
  Age: 57 Year
  Sex: Male

DRUGS (7)
  1. CLOZAPINE [Suspect]
     Dosage: UNK
     Dates: start: 20051115, end: 20090401
  2. ZAPONEX [Suspect]
     Dosage: 200 MG AT 6PM.
     Route: 048
     Dates: start: 20090626
  3. SALINE [Concomitant]
     Dosage: UNK
  4. OXYGEN [Concomitant]
     Dosage: UNK
  5. ALBUTEROL [Concomitant]
     Dosage: UNK
  6. HYPOTROPIUM [Concomitant]
     Dosage: UNK
  7. TEMAZEPAM [Concomitant]
     Dosage: 10 MG, UNK

REACTIONS (2)
  - ACUTE MYOCARDIAL INFARCTION [None]
  - CARDIAC ANEURYSM [None]
